FAERS Safety Report 23892395 (Version 1)
Quarter: 2024Q2

REPORT INFORMATION
  Report Type: Spontaneous
  Country: US (occurrence: None)
  Receive Date: 20240524
  Receipt Date: 20240524
  Transmission Date: 20240715
  Serious: No
  Sender: FDA-Public Use
  Company Number: US-ROCHE-3501383

PATIENT
  Age: 35 Year
  Sex: Female

DRUGS (1)
  1. OCREVUS [Suspect]
     Active Substance: OCRELIZUMAB
     Indication: Relapsing-remitting multiple sclerosis
     Dosage: 300 MG TWO WEEKS APART, THEN WENT TO 600 MG EVERY 6 MONTHS.
     Route: 042
     Dates: start: 20231227

REACTIONS (1)
  - Nasopharyngitis [Recovered/Resolved]
